FAERS Safety Report 16276055 (Version 1)
Quarter: 2019Q2

REPORT INFORMATION
  Report Type: Spontaneous
  Country: US (occurrence: US)
  Receive Date: 20190506
  Receipt Date: 20190506
  Transmission Date: 20190711
  Serious: Yes (Other)
  Sender: FDA-Public Use
  Company Number: US-TEVA-2019-US-1046343

PATIENT
  Sex: Female

DRUGS (1)
  1. PROAIR RESPICLICK [Suspect]
     Active Substance: ALBUTEROL SULFATE

REACTIONS (6)
  - Pulmonary congestion [Unknown]
  - Wrong technique in device usage process [Unknown]
  - Device use issue [Unknown]
  - Injury associated with device [Unknown]
  - Drug ineffective [Unknown]
  - Cough [Unknown]
